FAERS Safety Report 16526470 (Version 12)
Quarter: 2020Q3

REPORT INFORMATION
  Report Type: Report from Study
  Country: US (occurrence: US)
  Receive Date: 20190703
  Receipt Date: 20200819
  Transmission Date: 20201102
  Serious: Yes (Hospitalization, Other)
  Sender: FDA-Public Use
  Company Number: US-ACTELION-A-NJ2019-192526

PATIENT
  Age: 66 Year
  Sex: Female
  Weight: 52.15 kg

DRUGS (34)
  1. OPSUMIT [Suspect]
     Active Substance: MACITENTAN
     Indication: PULMONARY HYPERTENSION
     Dosage: 10 MG, QD
     Route: 048
     Dates: start: 201601
  2. SPIRIVA [Concomitant]
     Active Substance: TIOTROPIUM BROMIDE MONOHYDRATE
  3. RESTASIS [Concomitant]
     Active Substance: CYCLOSPORINE
  4. ALBUTEROL HFA [Concomitant]
     Active Substance: ALBUTEROL SULFATE
  5. UPTRAVI [Suspect]
     Active Substance: SELEXIPAG
     Dosage: 800 MCG, BID
     Route: 048
  6. TYVASO [Concomitant]
     Active Substance: TREPROSTINIL
  7. PRADAXA [Concomitant]
     Active Substance: DABIGATRAN ETEXILATE MESYLATE
  8. SPIRONOLACTONE. [Concomitant]
     Active Substance: SPIRONOLACTONE
  9. HYDROCORTISONE. [Concomitant]
     Active Substance: HYDROCORTISONE
  10. REFRESH TEARS [Concomitant]
     Active Substance: CARBOXYMETHYLCELLULOSE SODIUM
  11. UPTRAVI [Suspect]
     Active Substance: SELEXIPAG
     Indication: PULMONARY HYPERTENSION
     Dosage: 1000 MCG, BID
     Route: 048
     Dates: start: 20190731
  12. UPTRAVI [Suspect]
     Active Substance: SELEXIPAG
     Dosage: 1200 MCG, BID
     Route: 048
  13. FUROSEMIDE. [Concomitant]
     Active Substance: FUROSEMIDE
  14. METHOTREXATE. [Concomitant]
     Active Substance: METHOTREXATE
  15. VENTOLIN HFA [Concomitant]
     Active Substance: ALBUTEROL SULFATE
  16. BETAMETHASONE. [Concomitant]
     Active Substance: BETAMETHASONE
  17. REVATIO [Concomitant]
     Active Substance: SILDENAFIL CITRATE
  18. CLOBETASOL [Concomitant]
     Active Substance: CLOBETASOL
  19. MIRALAX [Concomitant]
     Active Substance: POLYETHYLENE GLYCOL 3350
  20. UPTRAVI [Suspect]
     Active Substance: SELEXIPAG
     Dosage: 200 MCG, BID
     Route: 048
     Dates: end: 20190618
  21. SILDENAFIL. [Concomitant]
     Active Substance: SILDENAFIL
  22. SOTALOL. [Concomitant]
     Active Substance: SOTALOL
  23. OMEPRAZOLE. [Concomitant]
     Active Substance: OMEPRAZOLE
  24. FOLIC ACID. [Concomitant]
     Active Substance: FOLIC ACID
  25. UPTRAVI [Suspect]
     Active Substance: SELEXIPAG
     Dosage: 1000 MCG AM, 1200 MCG PM
     Route: 048
  26. TADALAFIL. [Concomitant]
     Active Substance: TADALAFIL
  27. SENNA [Concomitant]
     Active Substance: SENNA LEAF\SENNOSIDES\SENNOSIDES A AND B
  28. ESTRING [Concomitant]
     Active Substance: ESTRADIOL
  29. UPTRAVI [Suspect]
     Active Substance: SELEXIPAG
     Dosage: 200 MCG, BID
     Route: 048
     Dates: start: 20190704
  30. ADVAIR HFA [Concomitant]
     Active Substance: FLUTICASONE PROPIONATE\SALMETEROL XINAFOATE
  31. UPTRAVI [Suspect]
     Active Substance: SELEXIPAG
     Dosage: 1400 MCG, BID
     Route: 048
  32. SIMVASTATIN. [Concomitant]
     Active Substance: SIMVASTATIN
  33. GABAPENTIN. [Concomitant]
     Active Substance: GABAPENTIN
  34. OXYCODONE [Concomitant]
     Active Substance: OXYCODONE

REACTIONS (18)
  - Hyperkalaemia [Recovering/Resolving]
  - Decreased appetite [Unknown]
  - Hip arthroplasty [Unknown]
  - Malaise [Recovering/Resolving]
  - Blood pressure decreased [Unknown]
  - Vomiting [Recovered/Resolved]
  - Diarrhoea [Recovering/Resolving]
  - Abdominal pain upper [Recovering/Resolving]
  - Arthralgia [Not Recovered/Not Resolved]
  - Sinus headache [Unknown]
  - Weight decreased [Unknown]
  - Feeling abnormal [Recovering/Resolving]
  - Seasonal allergy [Unknown]
  - Nasal congestion [Unknown]
  - Herpes zoster [Unknown]
  - Nausea [Not Recovered/Not Resolved]
  - Pain in jaw [Not Recovered/Not Resolved]
  - Influenza like illness [Unknown]

NARRATIVE: CASE EVENT DATE: 20190616
